FAERS Safety Report 5464628-2 (Version None)
Quarter: 2007Q3

REPORT INFORMATION
  Report Type: 
  Country: None (occurrence: None)
  Receive Date: 20070921
  Receipt Date: 20070911
  Transmission Date: 20080115
  Serious: Yes (Death, Life-Threatening, Hospitalization)
  Sender: FDA-Public Use
  Company Number: BR-PFIZER INC-2007072847

PATIENT
  Age: 54 Year
  Sex: Female

DRUGS (5)
  1. REVATIO [Suspect]
     Indication: PULMONARY HYPERTENSION
     Dosage: DAILY DOSE:150MG
     Route: 048
  2. BOSENTAN [Concomitant]
  3. ANTITHROMBOTIC AGENTS [Concomitant]
  4. CORTICOSTEROIDS [Concomitant]
  5. DIURETICS [Concomitant]

REACTIONS (2)
  - CARDIAC FAILURE [None]
  - PULMONARY HYPERTENSION [None]
